FAERS Safety Report 7014998-9 (Version None)
Quarter: 2010Q3

REPORT INFORMATION
  Report Type: 
  Country: None (occurrence: None)
  Receive Date: 20100927
  Receipt Date: 20100225
  Transmission Date: 20110219
  Serious: No
  Sender: FDA-Public Use
  Company Number: US-ASTRAZENECA-2010SE08571

PATIENT
  Age: 50 Year
  Sex: Female
  Weight: 95.3 kg

DRUGS (8)
  1. ARIMIDEX [Suspect]
     Indication: BREAST CANCER
     Route: 048
     Dates: start: 20090601
  2. OMEPRAZOLE [Concomitant]
  3. FASLODEX [Concomitant]
  4. ZOMETA [Concomitant]
  5. ADVAIR DISKUS 100/50 [Concomitant]
  6. PROVENTIL GENTLEHALER [Concomitant]
  7. ATIVAN [Concomitant]
  8. VERAPAMIL [Concomitant]

REACTIONS (2)
  - CARPAL TUNNEL SYNDROME [None]
  - DYSPHONIA [None]
